FAERS Safety Report 25885922 (Version 1)
Quarter: 2025Q4

REPORT INFORMATION
  Report Type: Spontaneous
  Country: US (occurrence: None)
  Receive Date: 20251004
  Receipt Date: 20251004
  Transmission Date: 20260119
  Serious: Yes (Other)
  Sender: FDA-CTU
  Company Number: None

PATIENT
  Age: 67 Year
  Sex: Female

DRUGS (3)
  1. IBRANCE [Suspect]
     Active Substance: PALBOCICLIB
     Indication: Breast cancer female
     Dosage: OTHER FREQUENCY : DAILY FOR 21 DAYS THEN 7 DAYS;?
     Route: 048
  2. ATORVASTATIN [Suspect]
     Active Substance: ATORVASTATIN
  3. ANASTROZOLE [Suspect]
     Active Substance: ANASTROZOLE

REACTIONS (3)
  - Drug interaction [None]
  - Therapy non-responder [None]
  - Metastatic neoplasm [None]
